FAERS Safety Report 7399451-5 (Version None)
Quarter: 2011Q2

REPORT INFORMATION
  Report Type: 
  Country: None (occurrence: None)
  Receive Date: 20110407
  Receipt Date: 20110325
  Transmission Date: 20111010
  Serious: Yes (Hospitalization, Other)
  Sender: FDA-Public Use
  Company Number: PHFR2010GB05570

PATIENT
  Sex: Female

DRUGS (1)
  1. TASIGNA [Suspect]
     Indication: CHRONIC MYELOID LEUKAEMIA
     Dosage: 400 MG, BID
     Dates: start: 20100730

REACTIONS (8)
  - HERNIA [None]
  - RESTLESSNESS [None]
  - INFECTION [None]
  - CHOLELITHIASIS [None]
  - BODY TEMPERATURE INCREASED [None]
  - DYSPNOEA [None]
  - CONFUSIONAL STATE [None]
  - HEART RATE INCREASED [None]
